FAERS Safety Report 5763794-9 (Version None)
Quarter: 2008Q2

REPORT INFORMATION
  Report Type: 
  Country: None (occurrence: None)
  Receive Date: 20080604
  Receipt Date: 20080604
  Transmission Date: 20081010
  Serious: Yes (Other)
  Sender: FDA-Public Use
  Company Number: None

PATIENT
  Age: 9 Month
  Sex: Male
  Weight: 6.9 kg

DRUGS (1)
  1. BOSENTAN 62.5 MG TABLET ACETLION PHARMACEUTICALS, US, [Suspect]
     Indication: PULMONARY HYPERTENSION
     Dosage: 15.6 MG Q12 HOURS PO
     Route: 048
     Dates: start: 20080327, end: 20080519

REACTIONS (4)
  - ALANINE AMINOTRANSFERASE INCREASED [None]
  - ASPARTATE AMINOTRANSFERASE INCREASED [None]
  - GENERAL PHYSICAL HEALTH DETERIORATION [None]
  - PULMONARY HYPERTENSION [None]
